FAERS Safety Report 6590535 (Version 16)
Quarter: 2013Q3

REPORT INFORMATION
  Report Type: Spontaneous
  Country: US (occurrence: US)
  Receive Date: 20080321
  Receipt Date: 20130807
  Transmission Date: 20140515
  Serious: Yes (Death, Other)
  Sender: FDA-Public Use
  Company Number: PHEH2008US02891

PATIENT
  Age: 77 Year
  Sex: Male

DRUGS (30)
  1. ZOMETA [Suspect]
     Dosage: 4 MG, UNK
     Route: 042
     Dates: start: 20030701, end: 20060124
  2. LUPRON [Concomitant]
     Dosage: 22.5 MG, UNK
     Route: 030
  3. ARANESP [Concomitant]
     Dosage: 300 UG, UNK
  4. TAXOTERE [Concomitant]
     Dosage: 75 MG, UNK
     Route: 030
  5. RED BLOOD CELLS [Concomitant]
     Dosage: 2 U, UNK
  6. PERCOCET [Concomitant]
     Indication: PAIN
     Dosage: UNK UKN, 1-2 TABS PRN Q 4-6 HRS
     Route: 048
  7. VANCOMYCIN [Concomitant]
     Dosage: UNK UKN, 1250 MG IV OVER 24 HRS FOR 5 WEEKS
     Route: 042
     Dates: start: 2007
  8. LEVAQUIN [Concomitant]
     Dosage: 750 MG, QD
     Route: 048
     Dates: end: 20070920
  9. PINDOLOL [Concomitant]
     Dosage: 5 MG, BID
  10. BIOTENE [Concomitant]
     Dosage: UNK UKN, 30 CC SWISH AND SPIT EVERY 4 HOURS
  11. TYLENOL [Concomitant]
     Dosage: UNK UKN, PRN
  12. BENACINE [Concomitant]
     Dosage: 125 UG, QD
     Route: 048
  13. TAXOL + CARBOPLATIN [Concomitant]
     Dosage: UNK UKN, UNK
  14. RADIATION THERAPY [Concomitant]
     Dosage: UNK UKN, UNK
  15. CASODEX [Concomitant]
     Dosage: UNK UKN, UNK
  16. FLOMAX ^BOEHRINGER INGELHEIM^ [Concomitant]
     Dosage: UNK UKN, UNK
  17. MAXZIDE [Concomitant]
     Dosage: UNK UKN, UNK
  18. ZETIA [Concomitant]
     Dosage: UNK UKN, UNK
  19. LIPITOR [Concomitant]
     Dosage: UNK UKN, UNK
  20. LANOXIN [Concomitant]
     Dosage: UNK UKN, UNK
  21. SENNA [Concomitant]
     Dosage: UNK UKN, UNK
  22. ASA [Concomitant]
     Dosage: 1 DF, QD
  23. DECADRON [Concomitant]
     Dosage: UNK UKN, UNK
  24. FLAGYL [Concomitant]
     Dosage: UNK UKN, UNK
  25. MITOXANTRONE [Concomitant]
     Dosage: UNK UKN, UNK
  26. PREDNISONE [Concomitant]
     Dosage: UNK UKN, UNK
  27. QUADRAMET [Concomitant]
     Dosage: UNK UKN, UNK
  28. MEGACE [Concomitant]
     Dosage: UNK UKN, UNK
  29. MONOCLONAL ANTIBODY 17-1A [Concomitant]
     Dosage: UNK UKN, UNK
  30. RED BLOOD CELLS, CONCENTRATED [Concomitant]
     Dosage: UNK UKN, UNK

REACTIONS (49)
  - Death [Fatal]
  - Hepatomegaly [Unknown]
  - Arrhythmia [Unknown]
  - Depression [Unknown]
  - Inguinal hernia [Unknown]
  - Herpes zoster [Unknown]
  - Spinal osteoarthritis [Unknown]
  - Osteonecrosis of jaw [Unknown]
  - Swelling face [Unknown]
  - Dental caries [Unknown]
  - Pain in jaw [Unknown]
  - Infection [Unknown]
  - Primary sequestrum [Unknown]
  - Exposed bone in jaw [Unknown]
  - Injury [Unknown]
  - Pain [Unknown]
  - Anxiety [Unknown]
  - Anhedonia [Unknown]
  - Disability [Unknown]
  - Gingival erythema [Unknown]
  - Gingival hypertrophy [Unknown]
  - Tooth fracture [Unknown]
  - Jaw fracture [Unknown]
  - Abscess jaw [Unknown]
  - Purulent discharge [Unknown]
  - Tooth abscess [Unknown]
  - Anaemia [Unknown]
  - Cholelithiasis [Unknown]
  - Constipation [Unknown]
  - Mesenteritis [Unknown]
  - Pancreatic cyst [Unknown]
  - Pulmonary granuloma [Unknown]
  - Diverticulum [Unknown]
  - Loose tooth [Unknown]
  - Osteopenia [Unknown]
  - Hiatus hernia [Unknown]
  - Spinal compression fracture [Unknown]
  - Metastases to bone [Unknown]
  - Dizziness [Unknown]
  - Dyspnoea [Unknown]
  - Chest discomfort [Unknown]
  - Syncope [Unknown]
  - Sick sinus syndrome [Unknown]
  - Lung disorder [Unknown]
  - Hypertension [Unknown]
  - Gastrooesophageal reflux disease [Unknown]
  - Arteriosclerosis coronary artery [Unknown]
  - Adrenal adenoma [Unknown]
  - Bone disorder [Unknown]
